FAERS Safety Report 4773306-4 (Version None)
Quarter: 2005Q3

REPORT INFORMATION
  Report Type: 
  Country: None (occurrence: None)
  Receive Date: 20050916
  Receipt Date: 20050909
  Transmission Date: 20060218
  Serious: Yes (Death)
  Sender: FDA-Public Use
  Company Number: 2005S1000165

PATIENT
  Age: 69 Year
  Sex: Male

DRUGS (2)
  1. CUBICIN [Suspect]
     Indication: ENTEROCOCCAL INFECTION
     Dosage: 260MG;Q24H;
  2. CUBICIN [Suspect]
     Indication: PLEURAL INFECTION
     Dosage: 260MG;Q24H;

REACTIONS (1)
  - BLOOD CREATININE INCREASED [None]
